FAERS Safety Report 24964867 (Version 1)
Quarter: 2025Q1

REPORT INFORMATION
  Report Type: Spontaneous
  Country: SE (occurrence: SE)
  Receive Date: 20250213
  Receipt Date: 20250213
  Transmission Date: 20250409
  Serious: Yes (Hospitalization)
  Sender: ACCORD
  Company Number: None

PATIENT
  Age: 67 Year
  Sex: Female
  Weight: 59 kg

DRUGS (2)
  1. DONEPEZIL HYDROCHLORIDE [Suspect]
     Active Substance: DONEPEZIL HYDROCHLORIDE
     Indication: Dementia Alzheimer^s type
     Dosage: 1X1
     Dates: start: 20241015, end: 20241120
  2. CANDESARTAN [Concomitant]
     Active Substance: CANDESARTAN
     Dosage: 1 PER DAY
     Dates: start: 20241002

REACTIONS (1)
  - Parkinsonism [Recovered/Resolved]

NARRATIVE: CASE EVENT DATE: 20241030
